FAERS Safety Report 17546175 (Version 1)
Quarter: 2020Q1

REPORT INFORMATION
  Report Type: Spontaneous
  Country: US (occurrence: US)
  Receive Date: 20200316
  Receipt Date: 20200316
  Transmission Date: 20200409
  Serious: No
  Sender: FDA-Public Use
  Company Number: None

PATIENT
  Age: 68 Year
  Sex: Female
  Weight: 90 kg

DRUGS (3)
  1. METRONIDAZOLE 500MG TAB UNIC [Suspect]
     Active Substance: METRONIDAZOLE
     Indication: BACTERIAL VAGINOSIS
     Dosage: ?          QUANTITY:1 TABLET(S);?
     Route: 048
     Dates: start: 20200311, end: 20200314
  2. PRAVACHOL 40MG [Concomitant]
  3. HYDROCHLOROTHIOZIDE 12.5MG [Concomitant]

REACTIONS (5)
  - Feeling jittery [None]
  - Headache [None]
  - Nausea [None]
  - Diarrhoea [None]
  - Rash [None]

NARRATIVE: CASE EVENT DATE: 20200314
